FAERS Safety Report 8986435 (Version 3)
Quarter: 2013Q3

REPORT INFORMATION
  Report Type: Report from Study
  Country: CA (occurrence: CA)
  Receive Date: 20121226
  Receipt Date: 20130812
  Transmission Date: 20140515
  Serious: No
  Sender: FDA-Public Use
  Company Number: PHHY2012CA052428

PATIENT
  Sex: Male

DRUGS (1)
  1. GILENYA [Suspect]
     Indication: RELAPSING-REMITTING MULTIPLE SCLEROSIS
     Dosage: 0.5 MG, DAILY
     Route: 048
     Dates: start: 20120601

REACTIONS (6)
  - Balance disorder [Unknown]
  - Disturbance in attention [Unknown]
  - Abdominal pain [Recovering/Resolving]
  - Heart rate decreased [Unknown]
  - Memory impairment [Unknown]
  - Drug ineffective [Unknown]
